FAERS Safety Report 20153473 (Version 4)
Quarter: 2022Q1

REPORT INFORMATION
  Report Type: Report from Study
  Country: CA (occurrence: CA)
  Receive Date: 20211206
  Receipt Date: 20220117
  Transmission Date: 20220424
  Serious: Yes (Hospitalization)
  Sender: FDA-Public Use
  Company Number: CA-ABBVIE-21K-028-4185925-00

PATIENT
  Sex: Female

DRUGS (4)
  1. RINVOQ [Suspect]
     Active Substance: UPADACITINIB
     Indication: Rheumatoid arthritis
     Route: 048
     Dates: start: 20201112, end: 2021
  2. METHOTREXATE [Concomitant]
     Active Substance: METHOTREXATE
     Indication: Product used for unknown indication
     Dates: end: 2021
  3. Shingle vaccine [Concomitant]
     Indication: Product used for unknown indication
     Dosage: 1ST DOSE
  4. Shingle vaccine [Concomitant]
     Dosage: 2ND DOSE
     Dates: start: 202010

REACTIONS (10)
  - Cellulite [Unknown]
  - Herpes zoster [Unknown]
  - Neck pain [Not Recovered/Not Resolved]
  - Erythema [Unknown]
  - Fall [Unknown]
  - Confusional state [Unknown]
  - Mobility decreased [Unknown]
  - Delirium [Unknown]
  - Peripheral swelling [Unknown]
  - Fluid retention [Not Recovered/Not Resolved]

NARRATIVE: CASE EVENT DATE: 20210101
